FAERS Safety Report 7636747-3 (Version None)
Quarter: 2011Q3

REPORT INFORMATION
  Report Type: 
  Country: None (occurrence: None)
  Receive Date: 20110722
  Receipt Date: 20110722
  Transmission Date: 20111222
  Serious: Yes (Other)
  Sender: FDA-Public Use
  Company Number: None

PATIENT
  Sex: Female
  Weight: 65.7716 kg

DRUGS (1)
  1. LIPITOR [Suspect]
     Dosage: SEE B5
     Dates: start: 20040101, end: 20100101

REACTIONS (4)
  - FALL [None]
  - MUSCULAR WEAKNESS [None]
  - BALANCE DISORDER [None]
  - MYALGIA [None]
